FAERS Safety Report 8001354-X (Version None)
Quarter: 2011Q4

REPORT INFORMATION
  Report Type: 
  Country: None (occurrence: None)
  Receive Date: 20111219
  Receipt Date: 20111214
  Transmission Date: 20120403
  Serious: Yes (Hospitalization, Other)
  Sender: FDA-Public Use
  Company Number: ADR-2010-9398

PATIENT
  Age: 38 Year
  Sex: Female

DRUGS (1)
  1. LIORESAL [Suspect]
     Indication: MUSCLE SPASTICITY
     Dosage: SEE B5 MCG, DAILY, INTR
     Route: 037

REACTIONS (20)
  - HEADACHE [None]
  - MUSCULAR WEAKNESS [None]
  - DEPRESSED LEVEL OF CONSCIOUSNESS [None]
  - INCONTINENCE [None]
  - UNRESPONSIVE TO STIMULI [None]
  - CONDITION AGGRAVATED [None]
  - HYPOTONIA [None]
  - DYSARTHRIA [None]
  - HYPOTENSION [None]
  - SPEECH DISORDER [None]
  - DEVICE CONNECTION ISSUE [None]
  - OVERDOSE [None]
  - SOMNOLENCE [None]
  - ABASIA [None]
  - MUSCULOSKELETAL STIFFNESS [None]
  - MUSCLE SPASTICITY [None]
  - TOXICITY TO VARIOUS AGENTS [None]
  - IMMOBILE [None]
  - ASTHENIA [None]
  - NAUSEA [None]
